FAERS Safety Report 19796585 (Version 1)
Quarter: 2021Q3

REPORT INFORMATION
  Report Type: Spontaneous
  Country: CN (occurrence: CN)
  Receive Date: 20210907
  Receipt Date: 20210907
  Transmission Date: 20211014
  Serious: Yes (Hospitalization)
  Sender: FDA-Public Use
  Company Number: CN-JNJFOC-20210860254

PATIENT
  Age: 42 Year
  Sex: Female
  Weight: 48 kg

DRUGS (1)
  1. TYLENOL [Suspect]
     Active Substance: ACETAMINOPHEN
     Indication: NASOPHARYNGITIS
     Route: 048
     Dates: start: 20210627, end: 20210630

REACTIONS (2)
  - Erythema multiforme [Recovered/Resolved]
  - Urticaria papular [Recovered/Resolved]

NARRATIVE: CASE EVENT DATE: 20210630
